FAERS Safety Report 18457332 (Version 1)
Quarter: 2020Q4

REPORT INFORMATION
  Report Type: Spontaneous
  Country: CN (occurrence: CN)
  Receive Date: 20201030
  Receipt Date: 20201030
  Transmission Date: 20210114
  Serious: Yes (Other)
  Sender: FDA-Public Use
  Company Number: CN-ASTRAZENECA-2020SF42186

PATIENT
  Age: 78 Year
  Sex: Male
  Weight: 56 kg

DRUGS (2)
  1. TICAGRELOR. [Suspect]
     Active Substance: TICAGRELOR
     Indication: MYOCARDIAL INFARCTION
     Route: 048
     Dates: start: 20201001, end: 20201006
  2. TICAGRELOR. [Suspect]
     Active Substance: TICAGRELOR
     Indication: PLATELET DISORDER
     Route: 048
     Dates: start: 20201001, end: 20201006

REACTIONS (3)
  - Dyspnoea [Recovering/Resolving]
  - N-terminal prohormone brain natriuretic peptide increased [Unknown]
  - Cardiac failure [Unknown]

NARRATIVE: CASE EVENT DATE: 20201004
